FAERS Safety Report 6441330-1 (Version None)
Quarter: 2009Q4

REPORT INFORMATION
  Report Type: 
  Country: None (occurrence: None)
  Receive Date: 20091113
  Receipt Date: 20091113
  Transmission Date: 20100525
  Serious: Yes (Hospitalization)
  Sender: FDA-Public Use
  Company Number: None

PATIENT
  Sex: Female
  Weight: 51.7101 kg

DRUGS (15)
  1. RITUXIMAB [Suspect]
     Indication: DIFFUSE LARGE B-CELL LYMPHOMA
     Dosage: EVERY 2 WEEKS IV DRIP
     Route: 041
     Dates: start: 20090926
  2. CYTOXAN [Suspect]
     Indication: DIFFUSE LARGE B-CELL LYMPHOMA
     Dosage: EVERY 2 WEEKS IV DRIP
     Route: 041
     Dates: start: 20090926
  3. DOXORUBICIN HCL [Suspect]
     Indication: DIFFUSE LARGE B-CELL LYMPHOMA
     Dosage: EVERY 2 WEEKS IV DRIP
     Route: 041
     Dates: start: 20090926
  4. VINCRISTINE [Suspect]
     Indication: DIFFUSE LARGE B-CELL LYMPHOMA
     Dosage: EVERY 2 WEEKS IV DRIP
     Route: 041
     Dates: start: 20090926
  5. PREDNISONE [Suspect]
     Indication: DIFFUSE LARGE B-CELL LYMPHOMA
     Dosage: EVERY 2 WEEKS IV DRIP
     Route: 041
     Dates: start: 20090926
  6. LEUKINE 250 MG/M2 [Suspect]
     Indication: DIFFUSE LARGE B-CELL LYMPHOMA
     Dosage: DAILY DAYS 3-11 SQ
     Route: 058
     Dates: start: 20090926
  7. COLACE [Concomitant]
  8. COMPAZINE [Concomitant]
  9. PEPCID [Concomitant]
  10. BENADRYL [Concomitant]
  11. ZOFRAN [Concomitant]
  12. TYLENOL (CAPLET) [Concomitant]
  13. LOVENOX [Concomitant]
  14. PRILOSEC [Concomitant]
  15. BACTRIM DS [Concomitant]

REACTIONS (4)
  - HERPES ZOSTER [None]
  - PAIN IN EXTREMITY [None]
  - PYREXIA [None]
  - RASH [None]
